FAERS Safety Report 10615512 (Version 2)
Quarter: 2015Q2

REPORT INFORMATION
  Report Type: Spontaneous
  Country: US (occurrence: US)
  Receive Date: 20141201
  Receipt Date: 20150618
  Transmission Date: 20150821
  Serious: Yes (Death)
  Sender: FDA-Public Use
  Company Number: US-PFIZER INC-2014325390

PATIENT
  Age: 67 Year
  Sex: Male

DRUGS (2)
  1. INLYTA [Suspect]
     Active Substance: AXITINIB
     Indication: RENAL CANCER
     Dosage: 5 MG, 2X/DAY
     Dates: start: 20141009, end: 20141118
  2. INLYTA [Suspect]
     Active Substance: AXITINIB
     Dosage: 5 MG, 1X/DAY
     Dates: end: 201505

REACTIONS (4)
  - Renal cancer [Fatal]
  - Disease progression [Fatal]
  - Swollen tongue [Recovering/Resolving]
  - Dysgeusia [Recovering/Resolving]

NARRATIVE: CASE EVENT DATE: 201411
